FAERS Safety Report 14624269 (Version 1)
Quarter: 2018Q1

REPORT INFORMATION
  Report Type: Other
  Country: IN (occurrence: IN)
  Receive Date: 20180312
  Receipt Date: 20180312
  Transmission Date: 20180509
  Serious: Yes (Hospitalization, Other)
  Sender: FDA-Public Use
  Company Number: IN-AJANTA PHARMA USA INC.-2043503

PATIENT
  Age: 29 Year
  Sex: Female

DRUGS (1)
  1. OLANZAPINE (ANDA 204320) [Suspect]
     Active Substance: OLANZAPINE
     Indication: ABNORMAL BEHAVIOUR

REACTIONS (1)
  - Post-injection delirium sedation syndrome [Recovered/Resolved]

NARRATIVE: CASE EVENT DATE: 201712
